FAERS Safety Report 16872099 (Version 2)
Quarter: 2019Q4

REPORT INFORMATION
  Report Type: Spontaneous
  Country: GR (occurrence: GR)
  Receive Date: 20191001
  Receipt Date: 20191001
  Transmission Date: 20200122
  Serious: Yes (Life-Threatening, Hospitalization, Other)
  Sender: FDA-Public Use
  Company Number: GR-ALKEM LABORATORIES LIMITED-GR-ALKEM-2019-08197

PATIENT
  Age: 65 Year
  Sex: Female

DRUGS (2)
  1. CAPECITABINE. [Suspect]
     Active Substance: CAPECITABINE
     Indication: CHEMOTHERAPY
     Dosage: 1000 MILLIGRAM/SQ. METER, BID (EVERY 12 HR)
     Route: 065
  2. BRIVUDINE [Suspect]
     Active Substance: BRIVUDINE
     Indication: HERPES ZOSTER
     Dosage: 125 MILLIGRAM, OD
     Route: 065

REACTIONS (14)
  - Anaemia [Recovering/Resolving]
  - Candida infection [Recovering/Resolving]
  - Pancytopenia [Recovering/Resolving]
  - Drug interaction [Unknown]
  - Toxicity to various agents [Unknown]
  - Asthenia [Recovering/Resolving]
  - Palmar-plantar erythrodysaesthesia syndrome [Recovering/Resolving]
  - Rash [Recovering/Resolving]
  - Thrombocytopenia [Recovering/Resolving]
  - Diarrhoea [Recovering/Resolving]
  - Pharyngeal inflammation [Recovering/Resolving]
  - Neutropenia [Recovering/Resolving]
  - Oesophagitis [Recovering/Resolving]
  - Stomatitis [Recovering/Resolving]
